FAERS Safety Report 7879295-8 (Version None)
Quarter: 2011Q4

REPORT INFORMATION
  Report Type: 
  Country: None (occurrence: None)
  Receive Date: 20111101
  Receipt Date: 20111021
  Transmission Date: 20120403
  Serious: Yes (Hospitalization)
  Sender: FDA-Public Use
  Company Number: US-BAYER-2011-053109

PATIENT
  Age: 26 Year
  Sex: Female
  Weight: 54 kg

DRUGS (8)
  1. YASMIN [Suspect]
     Dosage: UNK
     Dates: start: 20060101, end: 20090101
  2. DUET STUART PRENATAL [Concomitant]
     Dosage: UNK
     Route: 048
     Dates: start: 20080324
  3. ATIVAN [Concomitant]
  4. MEDROXYPROGESTERONE [Concomitant]
     Dosage: 10 MG, UNK
     Dates: start: 20070820, end: 20100524
  5. CLOMIPHENE CITRATE [Concomitant]
     Dosage: 50 MG, UNK
     Route: 048
     Dates: start: 20090708
  6. YAZ [Suspect]
     Dosage: UNK
     Dates: start: 20060101, end: 20090101
  7. LORAZEPAM [Concomitant]
     Dosage: 1 MG, UNK
     Route: 048
     Dates: start: 20070101, end: 20100101
  8. ZOLOFT [Concomitant]

REACTIONS (4)
  - PULMONARY EMBOLISM [None]
  - PAIN [None]
  - GALLBLADDER DISORDER [None]
  - CHOLECYSTITIS ACUTE [None]
